FAERS Safety Report 9177963 (Version 4)
Quarter: 2014Q2

REPORT INFORMATION
  Report Type: Spontaneous
  Country: US (occurrence: US)
  Receive Date: 20120531
  Receipt Date: 20140414
  Transmission Date: 20141212
  Serious: Yes (Hospitalization, Other)
  Sender: FDA-Public Use
  Company Number: US201203002996

PATIENT
  Age: 46 Year
  Sex: Male
  Weight: 111.56 kg

DRUGS (25)
  1. BYETTA PEN DISPOSABLE [Suspect]
     Route: 058
     Dates: start: 200906, end: 20100319
  2. SIMVASTATIN [Concomitant]
  3. TOPROL [Concomitant]
     Indication: HYPERTENSION
  4. GLUCOPHAGE [Concomitant]
     Route: 048
  5. ZESTRIL [Concomitant]
     Indication: HYPERTENSION
  6. AMARYL [Concomitant]
  7. BABY ASPIRIN [Concomitant]
  8. ELAVIL [Concomitant]
     Indication: DEPRESSION
     Dosage: ALSO TAKEN IN 2.5MG/DAY DOSE
     Route: 048
  9. MORPHINE [Concomitant]
  10. PANCREASE [Concomitant]
  11. PERCOCET [Concomitant]
  12. REGLAN [Concomitant]
     Route: 048
     Dates: start: 20120423
  13. HUMALOG [Concomitant]
     Dosage: 1DF:100 UNITS/ML
     Route: 058
     Dates: start: 20111213
  14. ASPIRIN [Concomitant]
     Route: 048
     Dates: start: 20091202
  15. SEPTRA DS [Concomitant]
     Dosage: 1DF:800-160MG
     Dates: start: 20111206
  16. PHENERGAN [Concomitant]
     Indication: NAUSEA
     Route: 048
     Dates: start: 20091030
  17. ZEGERID [Concomitant]
     Dosage: 1DF:40-1100MG
     Route: 048
     Dates: start: 20091102
  18. CIALIS [Concomitant]
     Route: 048
     Dates: start: 20100115
  19. PANCREASE [Concomitant]
     Route: 048
     Dates: start: 20100402
  20. CEPHALEXIN [Concomitant]
     Dates: start: 20091102
  21. CIPRO [Concomitant]
     Dates: start: 20091102
  22. COZAAR [Concomitant]
     Dates: start: 20090626
  23. ZANTAC [Concomitant]
  24. GLYBURIDE [Concomitant]
  25. NIACIN [Concomitant]
     Route: 048

REACTIONS (5)
  - Biliary dyskinesia [Unknown]
  - Cholecystitis chronic [Unknown]
  - Pseudocyst [Unknown]
  - Pancreatitis chronic [Unknown]
  - Cholelithiasis [Unknown]
